FAERS Safety Report 5658536-1 (Version None)
Quarter: 2008Q1

REPORT INFORMATION
  Report Type: 
  Country: None (occurrence: None)
  Receive Date: 20080310
  Receipt Date: 20070307
  Transmission Date: 20080703
  Serious: No
  Sender: FDA-Public Use
  Company Number: US-BAYER-200710722BCC

PATIENT
  Age: 84 Year
  Sex: Female
  Weight: 64 kg

DRUGS (5)
  1. ALEVE (CAPLET) [Suspect]
     Indication: ARTHRALGIA
     Dosage: TOTAL DAILY DOSE: 220 MG  UNIT DOSE: 220 MG
     Route: 048
     Dates: start: 20070101, end: 20070225
  2. SYNTHROID [Concomitant]
  3. ST. JOHN'S WORT [Concomitant]
  4. VITAMIN E [Concomitant]
  5. WALGREEN STORE BRAND ASPIRIN [Concomitant]

REACTIONS (1)
  - LETHARGY [None]
